FAERS Safety Report 4451916-1 (Version None)
Quarter: 2004Q3

REPORT INFORMATION
  Report Type: 
  Country: None (occurrence: None)
  Receive Date: 20040917
  Receipt Date: 20040908
  Transmission Date: 20050211
  Serious: Yes (Other)
  Sender: FDA-Public Use
  Company Number: SE-JNJFOC-20040501184

PATIENT
  Age: 54 Year
  Sex: Male

DRUGS (2)
  1. REMICADE [Suspect]
     Indication: ANKYLOSING SPONDYLITIS
     Route: 042
  2. METHOTREXATE [Concomitant]

REACTIONS (4)
  - COUGH [None]
  - ERYSIPELAS [None]
  - PHARYNGOLARYNGEAL PAIN [None]
  - STREPTOCOCCAL SEPSIS [None]
